FAERS Safety Report 4460915-5 (Version None)
Quarter: 2004Q3

REPORT INFORMATION
  Report Type: 
  Country: None (occurrence: None)
  Receive Date: 20040928
  Receipt Date: 20040610
  Transmission Date: 20050211
  Serious: No
  Sender: FDA-Public Use
  Company Number: US-GLAXOSMITHKLINE-A0514135A

PATIENT
  Age: 6 Year
  Sex: Female

DRUGS (4)
  1. ADVAIR DISKUS 100/50 [Suspect]
     Indication: ASTHMA
     Dosage: 1PUFF TWICE PER DAY
     Route: 055
     Dates: start: 20040528, end: 20040609
  2. FLOVENT [Suspect]
     Indication: ASTHMA
     Route: 055
  3. SINGULAIR [Concomitant]
  4. ALBUTEROL [Concomitant]
     Indication: ASTHMA
     Dates: end: 20040530

REACTIONS (3)
  - COGNITIVE DISORDER [None]
  - COUGH [None]
  - DYSPHONIA [None]
